FAERS Safety Report 11100289 (Version 1)
Quarter: 2015Q2

REPORT INFORMATION
  Report Type: Report from Study
  Country: GR (occurrence: GR)
  Receive Date: 20150508
  Receipt Date: 20150508
  Transmission Date: 20150821
  Serious: Yes (Other)
  Sender: FDA-Public Use
  Company Number: GR-BAYER-2015-182361

PATIENT
  Age: 43 Year
  Sex: Male

DRUGS (2)
  1. BETAFERON [Suspect]
     Active Substance: INTERFERON BETA-1B
     Indication: MULTIPLE SCLEROSIS
     Dosage: UNK
     Dates: start: 20140917, end: 20140922
  2. BETAFERON [Suspect]
     Active Substance: INTERFERON BETA-1B
     Indication: MULTIPLE SCLEROSIS
     Dosage: 0.50 ML, QOD
     Route: 058
     Dates: start: 20140923, end: 201411

REACTIONS (3)
  - Pyrexia [None]
  - Hypoaesthesia [None]
  - Movement disorder [None]

NARRATIVE: CASE EVENT DATE: 20140923
